FAERS Safety Report 8555386-3 (Version None)
Quarter: 2012Q3

REPORT INFORMATION
  Report Type: 
  Country: None (occurrence: None)
  Receive Date: 20120731
  Receipt Date: 20120202
  Transmission Date: 20120928
  Serious: No
  Sender: FDA-Public Use
  Company Number: US-ASTRAZENECA-2011SE34605

PATIENT
  Age: 62 Year
  Sex: Female
  Weight: 68 kg

DRUGS (3)
  1. SEROQUEL [Suspect]
     Indication: SLEEP DISORDER
     Route: 048
  2. SEROQUEL [Suspect]
     Dosage: 2 TABLETS BEFORE BEDTIME
     Route: 048
  3. SEROQUEL [Suspect]
     Route: 048

REACTIONS (3)
  - INSOMNIA [None]
  - DRUG DOSE OMISSION [None]
  - OFF LABEL USE [None]
